FAERS Safety Report 8813348 (Version 1)
Quarter: 2012Q4

REPORT INFORMATION
  Report Type: 
  Country: US (occurrence: US)
  Receive Date: 20120927
  Receipt Date: 20120927
  Transmission Date: 20130627
  Serious: No
  Sender: FDA-Public Use
  Company Number: US-AMGEN-USASP2012040619

PATIENT
  Sex: Female
  Weight: 74.83 kg

DRUGS (15)
  1. PROLIA [Suspect]
     Indication: OSTEOPOROSIS
     Dosage: 60 mg, q6mo
     Dates: start: 20101116, end: 20120419
  2. PROLIA [Suspect]
     Dosage: 60 mg, q6mo
     Dates: start: 20101116, end: 20120419
  3. PROLIA [Suspect]
     Dosage: 60 mg, q6mo
     Dates: start: 20101116, end: 20120419
  4. ENBREL [Concomitant]
     Indication: SPONDYLOARTHROPATHY
     Dosage: 50 mg, qwk
     Dates: start: 20120627
  5. METHOTREXATE [Concomitant]
     Indication: SPONDYLOARTHROPATHY
     Dosage: 15 mg, qwk
     Route: 030
     Dates: start: 20120509, end: 20120509
  6. LASIX [Concomitant]
     Dosage: 20 mg, prn
  7. WELCHOL [Concomitant]
     Dosage: UNK UNK, bid
  8. LEVOTHYROXINE [Concomitant]
     Dosage: 100 mg, qd
  9. ACETYLSALICYLIC ACID [Concomitant]
     Dosage: 81 mg, qd
  10. NEXIUM [Concomitant]
     Dosage: UNK
  11. MOBIC [Concomitant]
     Dosage: 15 mg, qd
  12. CYMBALTA [Concomitant]
     Dosage: UNK
  13. SEROQUEL [Concomitant]
     Dosage: UNK
  14. VITAMIN D3 [Concomitant]
     Dosage: 2000 IU, qd
  15. FLECTOR [Concomitant]
     Dosage: UNK

REACTIONS (14)
  - Musculoskeletal stiffness [Unknown]
  - Sinusitis [Unknown]
  - Oropharyngeal pain [Unknown]
  - Articular calcification [Unknown]
  - Joint range of motion decreased [Not Recovered/Not Resolved]
  - Hypoaesthesia [Unknown]
  - Fall [Unknown]
  - Upper limb fracture [Unknown]
  - Wrist fracture [Unknown]
  - Arthropod bite [Unknown]
  - Laryngitis [Unknown]
  - Musculoskeletal pain [Unknown]
  - Upper respiratory tract infection [Unknown]
  - Pain in extremity [Unknown]
